FAERS Safety Report 11301160 (Version 1)
Quarter: 2015Q2

REPORT INFORMATION
  Report Type: Spontaneous
  Country: US (occurrence: None)
  Receive Date: 20150626
  Receipt Date: 20150626
  Transmission Date: 20150821
  Serious: No
  Sender: FDA-Public Use
  Company Number: 1000076474

PATIENT
  Sex: Male

DRUGS (1)
  1. LINZESS [Suspect]
     Active Substance: LINACLOTIDE
     Indication: DIVERTICULITIS
     Dosage: 145 MCG, 1 IN 1 D

REACTIONS (3)
  - Diarrhoea [None]
  - Headache [None]
  - Off label use [None]

NARRATIVE: CASE EVENT DATE: 201504
